FAERS Safety Report 7309755-X (Version None)
Quarter: 2011Q1

REPORT INFORMATION
  Report Type: 
  Country: None (occurrence: None)
  Receive Date: 20110224
  Receipt Date: 20110214
  Transmission Date: 20110831
  Serious: No
  Sender: FDA-Public Use
  Company Number: US-BIOGENIDEC-2011BI005583

PATIENT
  Age: 55 Year
  Sex: Female

DRUGS (2)
  1. TRAZODONE HCL [Concomitant]
     Indication: INSOMNIA
  2. TYSABRI [Suspect]
     Indication: MULTIPLE SCLEROSIS
     Route: 042
     Dates: start: 20110211

REACTIONS (14)
  - PERIPHERAL COLDNESS [None]
  - DIARRHOEA [None]
  - MUSCULOSKELETAL CHEST PAIN [None]
  - FATIGUE [None]
  - SINUS HEADACHE [None]
  - MUSCULOSKELETAL STIFFNESS [None]
  - CHROMATURIA [None]
  - HEADACHE [None]
  - BAND SENSATION [None]
  - PAIN [None]
  - MUSCULOSKELETAL PAIN [None]
  - ARTHRALGIA [None]
  - FEELING ABNORMAL [None]
  - PYREXIA [None]
